FAERS Safety Report 25472451 (Version 3)
Quarter: 2025Q3

REPORT INFORMATION
  Report Type: Report from Study
  Country: EU (occurrence: EU)
  Receive Date: 20250624
  Receipt Date: 20250805
  Transmission Date: 20251021
  Serious: Yes (Other)
  Sender: KYOWA
  Company Number: EU-KYOWAKIRIN-2025KK011492

PATIENT

DRUGS (13)
  1. MOGAMULIZUMAB [Suspect]
     Active Substance: MOGAMULIZUMAB
     Indication: Cutaneous T-cell lymphoma
     Route: 042
     Dates: start: 20250403, end: 202504
  2. MOGAMULIZUMAB [Suspect]
     Active Substance: MOGAMULIZUMAB
     Route: 042
     Dates: start: 20250220, end: 20250515
  3. MOGAMULIZUMAB [Suspect]
     Active Substance: MOGAMULIZUMAB
     Route: 042
     Dates: start: 20250228, end: 202502
  4. MOGAMULIZUMAB [Suspect]
     Active Substance: MOGAMULIZUMAB
     Route: 042
     Dates: start: 20250307, end: 202503
  5. MOGAMULIZUMAB [Suspect]
     Active Substance: MOGAMULIZUMAB
     Route: 042
     Dates: start: 20250314, end: 202503
  6. MOGAMULIZUMAB [Suspect]
     Active Substance: MOGAMULIZUMAB
     Route: 042
     Dates: start: 20250321, end: 202503
  7. MOGAMULIZUMAB [Suspect]
     Active Substance: MOGAMULIZUMAB
     Route: 042
     Dates: start: 20250417, end: 202504
  8. MOGAMULIZUMAB [Suspect]
     Active Substance: MOGAMULIZUMAB
     Route: 042
     Dates: start: 20250502, end: 202505
  9. MOGAMULIZUMAB [Suspect]
     Active Substance: MOGAMULIZUMAB
     Route: 042
     Dates: start: 20250515, end: 202505
  10. MOGAMULIZUMAB [Suspect]
     Active Substance: MOGAMULIZUMAB
     Route: 042
     Dates: start: 20250530, end: 202505
  11. MOGAMULIZUMAB [Suspect]
     Active Substance: MOGAMULIZUMAB
     Route: 042
     Dates: start: 20250612, end: 202506
  12. MOGAMULIZUMAB [Suspect]
     Active Substance: MOGAMULIZUMAB
     Route: 042
     Dates: start: 20250626, end: 202506
  13. MOGAMULIZUMAB [Suspect]
     Active Substance: MOGAMULIZUMAB
     Route: 042
     Dates: start: 20250710

REACTIONS (4)
  - Hepatic cytolysis [Recovered/Resolved]
  - Acute kidney injury [Not Recovered/Not Resolved]
  - Lymphocytosis [Recovered/Resolved]
  - Blood alkaline phosphatase increased [Not Recovered/Not Resolved]

NARRATIVE: CASE EVENT DATE: 20250415
